FAERS Safety Report 4603858-6 (Version None)
Quarter: 2005Q1

REPORT INFORMATION
  Report Type: 
  Country: None (occurrence: None)
  Receive Date: 20050308
  Receipt Date: 20050302
  Transmission Date: 20050727
  Serious: Yes (Hospitalization)
  Sender: FDA-Public Use
  Company Number: 230010M05USA

PATIENT
  Age: 50 Year
  Sex: Female

DRUGS (3)
  1. REBIF [Suspect]
     Indication: MULTIPLE SCLEROSIS
     Dosage: 44 MCG, 3 IN 1 WEEKS
     Dates: start: 20021104, end: 20041214
  2. NERONTIN (GABAPENTIN) [Concomitant]
  3. DITROPAN XL [Concomitant]

REACTIONS (7)
  - ABASIA [None]
  - BUTTOCK PAIN [None]
  - INJECTION SITE NECROSIS [None]
  - INJECTION SITE SCAR [None]
  - PAIN [None]
  - SKIN NECROSIS [None]
  - SUPERINFECTION [None]
